FAERS Safety Report 9012192 (Version 1)
Quarter: 2013Q1

REPORT INFORMATION
  Report Type: Spontaneous
  Country: US (occurrence: US)
  Receive Date: 20130114
  Receipt Date: 20130114
  Transmission Date: 20140127
  Serious: Yes (Other)
  Sender: FDA-Public Use
  Company Number: US-PFIZER INC-2013013491

PATIENT
  Age: 32 Year
  Sex: Female
  Weight: 72.56 kg

DRUGS (15)
  1. NEURONTIN [Suspect]
     Indication: CONVULSION
     Dosage: 800, 3X/DAY
     Dates: start: 201301, end: 201301
  2. NEURONTIN [Suspect]
     Indication: NERVE INJURY
  3. TRAZODONE [Concomitant]
     Indication: SLEEP DISORDER
     Dosage: 200 MG, 1X/DAY
     Dates: start: 201301
  4. CHLORPROMAZINE [Concomitant]
     Dosage: UNK
  5. BACLOFEN [Concomitant]
     Indication: MUSCLE RELAXANT THERAPY
     Dosage: 10 MG, 1X/DAY
  6. LEXAPRO [Concomitant]
     Indication: DEPRESSION
     Dosage: UNK
  7. HYDROXYZINE [Concomitant]
     Indication: ANXIETY
     Dosage: 50 MG, 3X/DAY
  8. PRISTIQ [Concomitant]
     Indication: DEPRESSION
     Dosage: 50 MG, 1X/DAY
  9. ULTRAM [Concomitant]
     Dosage: 50 MG, UNK
  10. TORADOL [Concomitant]
     Indication: PALPITATIONS
     Dosage: UNK
     Dates: start: 201301
  11. AZITHROMYCIN [Concomitant]
     Indication: CHLAMYDIAL INFECTION
     Dosage: 1 G, UNK
     Dates: start: 20130103
  12. FLAGYL [Concomitant]
     Indication: TRICHOMONIASIS
     Dosage: 2 G, UNK
     Dates: start: 20130103
  13. ROCEPHIN [Concomitant]
     Indication: GONORRHOEA
     Dosage: 250 MG, UNK
     Route: 030
     Dates: start: 20130103
  14. ZOFRAN [Concomitant]
     Indication: NAUSEA
     Dosage: UNK
     Dates: start: 20130103
  15. PLAN B [Concomitant]
     Indication: CONTRACEPTION
     Dosage: UNK
     Dates: start: 20130103

REACTIONS (9)
  - Cognitive disorder [Unknown]
  - Drug ineffective [Not Recovered/Not Resolved]
  - Dyskinesia [Not Recovered/Not Resolved]
  - Pain in extremity [Unknown]
  - Myalgia [Unknown]
  - Swollen tongue [Unknown]
  - Muscle twitching [Not Recovered/Not Resolved]
  - Coordination abnormal [Not Recovered/Not Resolved]
  - Neuralgia [Not Recovered/Not Resolved]
